FAERS Safety Report 11625588 (Version 1)
Quarter: 2015Q4

REPORT INFORMATION
  Report Type: Report from Study
  Country: US (occurrence: US)
  Receive Date: 20151013
  Receipt Date: 20151013
  Transmission Date: 20160304
  Serious: Yes (Death)
  Sender: FDA-Public Use
  Company Number: US-JNJFOC-20151006809

PATIENT
  Age: 2 Month
  Sex: Female

DRUGS (1)
  1. DURAGESIC [Suspect]
     Active Substance: FENTANYL
     Indication: PRODUCT USED FOR UNKNOWN INDICATION
     Route: 062

REACTIONS (4)
  - Hypertension [Fatal]
  - Off label use [Unknown]
  - Migraine [Fatal]
  - Product use issue [Unknown]

NARRATIVE: CASE EVENT DATE: 20151008
